FAERS Safety Report 5235436-2 (Version None)
Quarter: 2007Q1

REPORT INFORMATION
  Report Type: 
  Country: None (occurrence: None)
  Receive Date: 20070208
  Receipt Date: 20070208
  Transmission Date: 20070707
  Serious: Yes (Life-Threatening, Hospitalization)
  Sender: FDA-Public Use
  Company Number: None

PATIENT
  Sex: Male

DRUGS (1)
  1. CETUXIMAB [Suspect]
     Indication: COLON CANCER
     Dosage: 812 MG ONCE IV
     Route: 042
     Dates: start: 20061208

REACTIONS (7)
  - BLOOD PRESSURE DECREASED [None]
  - CHEST DISCOMFORT [None]
  - DYSPEPSIA [None]
  - FLUSHING [None]
  - HEART RATE DECREASED [None]
  - HEART RATE INCREASED [None]
  - PRURITUS [None]
